FAERS Safety Report 6543338-4 (Version None)
Quarter: 2010Q1

REPORT INFORMATION
  Report Type: 
  Country: None (occurrence: None)
  Receive Date: 20100120
  Receipt Date: 20100112
  Transmission Date: 20100710
  Serious: Yes (Other)
  Sender: FDA-Public Use
  Company Number: US-JNJFOC-20100106046

PATIENT
  Sex: Female

DRUGS (2)
  1. MOTRIN IB [Suspect]
     Route: 048
  2. MOTRIN IB [Suspect]
     Indication: DRUG USE FOR UNKNOWN INDICATION
     Dosage: 3 ^PILLS^ OVER PROPER DOSAGE
     Route: 048

REACTIONS (2)
  - BLOOD URINE PRESENT [None]
  - INCORRECT DOSE ADMINISTERED [None]
